FAERS Safety Report 4511820-7 (Version None)
Quarter: 2004Q4

REPORT INFORMATION
  Report Type: 
  Country: None (occurrence: None)
  Receive Date: 20041122
  Receipt Date: 20041109
  Transmission Date: 20050328
  Serious: Yes (Other)
  Sender: FDA-Public Use
  Company Number: 2004233498US

PATIENT
  Age: 60 Year
  Sex: Female
  Weight: 59.86 kg

DRUGS (1)
  1. ESTRADIOL [Suspect]
     Indication: VULVOVAGINAL DRYNESS
     Dosage: VAGINAL
     Route: 067
     Dates: start: 20010101, end: 20040101

REACTIONS (8)
  - BACTERIAL INFECTION [None]
  - CHEMICAL INJURY [None]
  - INFLAMMATION [None]
  - PAIN [None]
  - SUICIDAL IDEATION [None]
  - TREATMENT NONCOMPLIANCE [None]
  - VAGINAL MYCOSIS [None]
  - VAGINITIS BACTERIAL [None]
